FAERS Safety Report 14339818 (Version 1)
Quarter: 2017Q4

REPORT INFORMATION
  Report Type: Spontaneous
  Country: FR (occurrence: FR)
  Receive Date: 20171230
  Receipt Date: 20171230
  Transmission Date: 20180321
  Serious: Yes (Hospitalization)
  Sender: FDA-Public Use
  Company Number: FR-MYLANLABS-2017M1082850

PATIENT
  Age: 52 Year
  Sex: Male
  Weight: 89 kg

DRUGS (4)
  1. VINCRISTINE TEVA [Suspect]
     Active Substance: VINCRISTINE
     Indication: EWING^S SARCOMA
     Route: 042
     Dates: start: 20171107, end: 20171107
  2. DOXORUBICINE ACCORD [Suspect]
     Active Substance: DOXORUBICIN
     Indication: EWING^S SARCOMA
     Route: 042
     Dates: start: 20171107, end: 20171110
  3. ETOPOSIDE MYLAN 20 MG/ML, SOLUTION ? DILUER POUR PERFUSION [Suspect]
     Active Substance: ETOPOSIDE
     Indication: EWING^S SARCOMA
     Route: 042
     Dates: start: 20171107, end: 20171110
  4. HOLOXAN [Suspect]
     Active Substance: IFOSFAMIDE
     Indication: EWING^S SARCOMA
     Route: 042
     Dates: start: 20171107, end: 20171110

REACTIONS (2)
  - Tonic convulsion [Recovered/Resolved]
  - Encephalopathy [Recovered/Resolved]

NARRATIVE: CASE EVENT DATE: 20171108
